FAERS Safety Report 6229212-1 (Version None)
Quarter: 2009Q2

REPORT INFORMATION
  Report Type: 
  Country: None (occurrence: None)
  Receive Date: 20090615
  Receipt Date: 20090514
  Transmission Date: 20091009
  Serious: No
  Sender: FDA-Public Use
  Company Number: US-BAYER-200920912NA

PATIENT
  Age: 49 Year
  Sex: Female
  Weight: 64 kg

DRUGS (1)
  1. MIRENA [Suspect]
     Indication: CONTRACEPTION
     Route: 015
     Dates: start: 20090122, end: 20090507

REACTIONS (6)
  - ABDOMINAL DISCOMFORT [None]
  - ABDOMINAL DISTENSION [None]
  - DEPRESSED MOOD [None]
  - LETHARGY [None]
  - MALAISE [None]
  - VAGINAL HAEMORRHAGE [None]
